FAERS Safety Report 5061779-1 (Version None)
Quarter: 2006Q3

REPORT INFORMATION
  Report Type: 
  Country: None (occurrence: None)
  Receive Date: 20060703
  Receipt Date: 20060112
  Transmission Date: 20061208
  Serious: No
  Sender: FDA-Public Use
  Company Number: 2006S1000389

PATIENT
  Age: 49 Year
  Sex: Male
  Weight: 104.3273 kg

DRUGS (37)
  1. CLOZAPINE [Suspect]
     Indication: PSYCHOTIC DISORDER
     Dosage: SEE IMAGE
     Route: 048
     Dates: start: 19991222
  2. CLOZAPINE [Suspect]
     Indication: SCHIZOPHRENIA, PARANOID TYPE
     Dosage: SEE IMAGE
     Route: 048
     Dates: start: 19991222
  3. CLOZAPINE [Suspect]
     Indication: PSYCHOTIC DISORDER
     Dosage: SEE IMAGE
     Route: 048
     Dates: start: 19991222
  4. CLOZAPINE [Suspect]
     Indication: SCHIZOPHRENIA, PARANOID TYPE
     Dosage: SEE IMAGE
     Route: 048
     Dates: start: 19991222
  5. TIOTIXENE [Concomitant]
  6. VALPROATE SODIUM [Concomitant]
  7. CYANOCOBALAMIN [Concomitant]
  8. LITHIUM CARBONATE [Concomitant]
  9. UBIDECARENONE [Concomitant]
  10. DOCUSATE SODIUM/SENNA [Concomitant]
  11. ACETYLSALICYLIC ACID SRT [Concomitant]
  12. ISOSORBIDE DINITRATE [Concomitant]
  13. ASCORBIC ACID [Concomitant]
  14. DONEPEZIL HYDROCHLORIDE [Concomitant]
  15. LORATADINE [Concomitant]
  16. PIOGLITAZONE HCL [Concomitant]
  17. OMEPRAZOLE [Concomitant]
  18. FOLIC ACID/VITAMINS NOS/MINERALS NOS [Concomitant]
  19. PSYLLIUM HYDROPHILIC MUCILLOID [Concomitant]
  20. BUPROPION HCL [Concomitant]
  21. BENZTROPINE MESYLATE [Concomitant]
  22. ARIPIPRAZOLE [Concomitant]
  23. METFORMIN [Concomitant]
  24. FERROUS SULFATE TAB [Concomitant]
  25. LISINOPRIL [Concomitant]
  26. FENOFIBRATE [Concomitant]
  27. GLIBENCLAMIDE [Concomitant]
  28. ALBUTEROL SPIROS [Concomitant]
  29. IBUPROFEN [Concomitant]
  30. MAGNESIUM HYDROXIDE/ALUMINUM HYDROXIDE GEL, DRIED/SIMETICONE [Concomitant]
  31. MECLIZINE [Concomitant]
  32. BISACODYL [Concomitant]
  33. ACETAMINOPHEN [Concomitant]
  34. CHLOROPHYLL [Concomitant]
  35. CLONAZEPAM [Concomitant]
  36. SODIUM CHLORIDE [Concomitant]
  37. AMMONIUM LACTATE [Concomitant]

REACTIONS (1)
  - GRANULOCYTOPENIA [None]
